FAERS Safety Report 5738190-0 (Version None)
Quarter: 2008Q2

REPORT INFORMATION
  Report Type: 
  Country: None (occurrence: None)
  Receive Date: 20080514
  Receipt Date: 20080502
  Transmission Date: 20081010
  Serious: Yes (Hospitalization)
  Sender: FDA-Public Use
  Company Number: DE-PFIZER INC-2008026930

PATIENT
  Age: 40 Year
  Sex: Female

DRUGS (1)
  1. ZITHROMAX [Suspect]
     Indication: NASOPHARYNGITIS
     Route: 048
     Dates: start: 20080310, end: 20080312

REACTIONS (6)
  - ANXIETY [None]
  - DIZZINESS [None]
  - HEADACHE [None]
  - NAUSEA [None]
  - PANCREATITIS [None]
  - TREMOR [None]
